FAERS Safety Report 8799746 (Version 2)
Quarter: 2012Q4

REPORT INFORMATION
  Report Type: Spontaneous
  Country: DE (occurrence: None)
  Receive Date: 20120914
  Receipt Date: 20121130
  Transmission Date: 20130627
  Serious: Yes (Other)
  Sender: FDA-Public Use
  Company Number: ACO_31874_2012

PATIENT
  Age: 44 Year
  Sex: Male

DRUGS (3)
  1. FAMPYRA [Suspect]
     Indication: PROGRESSIVE MULTIPLE SCLEROSIS
     Route: 048
     Dates: start: 201108, end: 201208
  2. FAMPYRA [Suspect]
     Indication: PROGRESSIVE MULTIPLE SCLEROSIS
     Route: 048
     Dates: start: 201208
  3. GABAPENTIN (GABAPENTIN) [Concomitant]

REACTIONS (6)
  - Oedema [None]
  - Haemorrhage subcutaneous [None]
  - Skin exfoliation [None]
  - Blister [None]
  - Skin burning sensation [None]
  - Off label use [None]
